FAERS Safety Report 8909397 (Version 1)
Quarter: 2012Q4

REPORT INFORMATION
  Report Type: Spontaneous
  Country: US (occurrence: None)
  Receive Date: 20121109
  Receipt Date: 20121109
  Transmission Date: 20130627
  Serious: Yes (Disabling, Other)
  Sender: FDA-Public Use
  Company Number: GER/UKI/12/0026480

PATIENT
  Age: 83 Year
  Sex: Female

DRUGS (4)
  1. ATORVASTATIN [Suspect]
     Indication: DRUG USE FOR UNKNOWN INDICATION
     Dosage: 80 mg, 1 in 1 D, Oral
     Dates: start: 201204, end: 201209
  2. BENDROFLUMETHIAZIDE (BENDROFLUMETHIAZIDE) [Concomitant]
  3. BISOPROLOL FUMARATE (BISOPROLOL FUMARATE) [Concomitant]
  4. ISOSORBIDE (ISOSORBIDE) [Concomitant]

REACTIONS (4)
  - Hypertrophic cardiomyopathy [None]
  - Cardiac failure [None]
  - Balance disorder [None]
  - Decreased appetite [None]
